FAERS Safety Report 25099408 (Version 4)
Quarter: 2025Q2

REPORT INFORMATION
  Report Type: Spontaneous
  Country: NZ (occurrence: NZ)
  Receive Date: 20250320
  Receipt Date: 20250604
  Transmission Date: 20250717
  Serious: Yes (Other)
  Sender: MYLAN
  Company Number: NZ-MYLANLABS-2024M1103559

PATIENT
  Age: 63 Year
  Sex: Female

DRUGS (1)
  1. CLOZARIL [Suspect]
     Active Substance: CLOZAPINE
     Indication: Schizophrenia

REACTIONS (5)
  - Thrombocytosis [Recovering/Resolving]
  - Haemoglobin decreased [Recovering/Resolving]
  - Haematocrit decreased [Recovering/Resolving]
  - White blood cell count increased [Not Recovered/Not Resolved]
  - Neutrophil count increased [Recovering/Resolving]

NARRATIVE: CASE EVENT DATE: 20241118
